FAERS Safety Report 6779268-2 (Version None)
Quarter: 2010Q2

REPORT INFORMATION
  Report Type: 
  Country: None (occurrence: None)
  Receive Date: 20100618
  Receipt Date: 20100614
  Transmission Date: 20101027
  Serious: Yes (Death)
  Sender: FDA-Public Use
  Company Number: IN-ROCHE-709417

PATIENT
  Sex: Female
  Weight: 35 kg

DRUGS (3)
  1. BEVACIZUMAB [Suspect]
     Indication: METASTATIC RENAL CELL CARCINOMA
     Route: 042
     Dates: start: 20090819
  2. INTERFERON ALFA [Suspect]
     Indication: METASTATIC RENAL CELL CARCINOMA
     Dosage: DOSE 9 MUI
     Route: 058
     Dates: start: 20090819
  3. DOMSTAL [Concomitant]
     Dates: start: 20100610

REACTIONS (3)
  - INTESTINAL PERFORATION [None]
  - PERITONITIS [None]
  - SEPSIS [None]
